FAERS Safety Report 21807527 (Version 1)
Quarter: 2023Q1

REPORT INFORMATION
  Report Type: Spontaneous
  Country: ME (occurrence: ME)
  Receive Date: 20230103
  Receipt Date: 20230103
  Transmission Date: 20230417
  Serious: Yes (Death, Hospitalization, Other)
  Sender: FDA-Public Use
  Company Number: ME-009507513-2212MNE009153

PATIENT
  Sex: Male
  Weight: 94 kg

DRUGS (2)
  1. PEMBROLIZUMAB [Suspect]
     Active Substance: PEMBROLIZUMAB
     Indication: Non-small cell lung cancer metastatic
     Dosage: FIRST PLANNED CYCLE
     Route: 042
     Dates: start: 20221121, end: 20221121
  2. PEMBROLIZUMAB [Suspect]
     Active Substance: PEMBROLIZUMAB
     Indication: Non-small cell lung cancer

REACTIONS (5)
  - Mouth ulceration [Fatal]
  - Erythema [Fatal]
  - Skin exfoliation [Fatal]
  - Stevens-Johnson syndrome [Fatal]
  - Dermatitis exfoliative [Unknown]

NARRATIVE: CASE EVENT DATE: 20221127
